FAERS Safety Report 9995407 (Version 1)
Quarter: 2014Q1

REPORT INFORMATION
  Report Type: Spontaneous
  Country: US (occurrence: None)
  Receive Date: 20140307
  Receipt Date: 20140307
  Transmission Date: 20141002
  Serious: Yes (Disabling)
  Sender: FDA-Public Use
  Company Number: None

PATIENT
  Age: 40 Year
  Sex: Male
  Weight: 204.12 kg

DRUGS (1)
  1. LIPITOR [Suspect]
     Indication: MYOCARDIAL INFARCTION
     Dosage: 30 ONCE DAILY
     Route: 048

REACTIONS (4)
  - Diabetes mellitus [None]
  - Toe amputation [None]
  - Neuropathy peripheral [None]
  - Amnesia [None]
